FAERS Safety Report 16848758 (Version 1)
Quarter: 2019Q3

REPORT INFORMATION
  Report Type: Spontaneous
  Country: PL (occurrence: PL)
  Receive Date: 20190925
  Receipt Date: 20190925
  Transmission Date: 20191005
  Serious: Yes (Hospitalization, Other)
  Sender: FDA-Public Use
  Company Number: PL-CELLTRION INC.-2019PL025038

PATIENT

DRUGS (4)
  1. RITUXIMAB (UNKNOWN) [Suspect]
     Active Substance: RITUXIMAB
     Indication: CHRONIC LYMPHOCYTIC LEUKAEMIA STAGE 2
     Dosage: UNK
     Route: 065
  2. CYCLOPHOSPHAMIDE. [Suspect]
     Active Substance: CYCLOPHOSPHAMIDE
     Indication: CHRONIC LYMPHOCYTIC LEUKAEMIA STAGE 2
     Dosage: UNK
     Route: 065
  3. BENDAMUSTINE [Suspect]
     Active Substance: BENDAMUSTINE
     Indication: CHRONIC LYMPHOCYTIC LEUKAEMIA STAGE 2
     Dosage: UNK
     Route: 065
  4. FLUDARABINE [Suspect]
     Active Substance: FLUDARABINE PHOSPHATE
     Indication: CHRONIC LYMPHOCYTIC LEUKAEMIA STAGE 2
     Dosage: UNK
     Route: 065

REACTIONS (11)
  - Abdominal pain [Unknown]
  - Cytomegalovirus infection [Unknown]
  - Chronic lymphocytic leukaemia stage 2 [Unknown]
  - Colorectal cancer metastatic [Unknown]
  - Escherichia infection [Unknown]
  - Malignant neoplasm progression [Unknown]
  - Cough [Unknown]
  - Haematochezia [Unknown]
  - Febrile neutropenia [Unknown]
  - Pyrexia [Unknown]
  - Rhinitis [Unknown]

NARRATIVE: CASE EVENT DATE: 201409
